FAERS Safety Report 5509334-0 (Version None)
Quarter: 2007Q4

REPORT INFORMATION
  Report Type: 
  Country: None (occurrence: None)
  Receive Date: 20071106
  Receipt Date: 20071023
  Transmission Date: 20080405
  Serious: Yes (Other)
  Sender: FDA-Public Use
  Company Number: PHEH2007US14100

PATIENT
  Age: 54 Year
  Sex: Male

DRUGS (2)
  1. LAMISIL [Suspect]
     Indication: ONYCHOMYCOSIS
     Dosage: QD, TOPICAL
     Route: 061
     Dates: start: 20060301, end: 20061201
  2. TEA TREE OIL(MELALEUCA ALTERNIFOLIA OIL) [Suspect]
     Dosage: TOPICAL
     Route: 061

REACTIONS (6)
  - ASTHENIA [None]
  - BIOPSY LIVER ABNORMAL [None]
  - EXERCISE TOLERANCE DECREASED [None]
  - HEPATIC ENZYME INCREASED [None]
  - MUSCLE SPASMS [None]
  - MUSCULAR WEAKNESS [None]
